FAERS Safety Report 4714796-2 (Version None)
Quarter: 2005Q3

REPORT INFORMATION
  Report Type: 
  Country: None (occurrence: None)
  Receive Date: 20050714
  Receipt Date: 20050714
  Transmission Date: 20060218
  Serious: Yes (Hospitalization)
  Sender: FDA-Public Use
  Company Number: None

PATIENT
  Age: 72 Year
  Sex: Female

DRUGS (1)
  1. FOSCARNET; FOSCAVIR, ASTRAZENECA; ANTIVIRAL ; INJECTION [Suspect]
     Indication: HERPES SIMPLEX
     Dosage: INTRAVENOUS;;0;0
     Dates: start: 20050501, end: 20050527

REACTIONS (2)
  - FAILURE TO THRIVE [None]
  - NAUSEA [None]
